FAERS Safety Report 9017503 (Version 1)
Quarter: 2013Q1

REPORT INFORMATION
  Report Type: Spontaneous
  Country: TR (occurrence: TR)
  Receive Date: 20130117
  Receipt Date: 20130117
  Transmission Date: 20140127
  Serious: Yes (Hospitalization)
  Sender: FDA-Public Use
  Company Number: PHHY2013TR003904

PATIENT
  Age: 8 Month
  Sex: 0

DRUGS (2)
  1. VITAMIN D [Suspect]
  2. VITAMIN D [Suspect]
     Dosage: 1500 IU, UNK

REACTIONS (2)
  - Hypercalcaemia [Recovered/Resolved]
  - Toxicity to various agents [Unknown]
